FAERS Safety Report 14217131 (Version 1)
Quarter: 2017Q4

REPORT INFORMATION
  Report Type: Spontaneous
  Country: US (occurrence: US)
  Receive Date: 20171122
  Receipt Date: 20171122
  Transmission Date: 20180321
  Serious: No
  Sender: FDA-Public Use
  Company Number: US-LUPIN PHARMACEUTICALS INC.-2017-00283

PATIENT
  Age: 62 Year
  Sex: Female

DRUGS (3)
  1. INSULIN [Concomitant]
     Active Substance: INSULIN NOS
     Indication: DIABETES MELLITUS
     Dosage: UNK UNK,UNK,UNKNOWN
     Route: 065
  2. METFORMIN [Suspect]
     Active Substance: METFORMIN HYDROCHLORIDE
     Indication: DIABETES MELLITUS
     Dosage: UNK UNK,UNK,UNKNOWN
     Route: 065
  3. SYMLIN [Suspect]
     Active Substance: PRAMLINTIDE ACETATE
     Indication: DIABETES MELLITUS
     Dosage: UNK UNK,UNK,UNKNOWN
     Route: 065

REACTIONS (2)
  - Adverse drug reaction [Unknown]
  - Gastrointestinal disorder [Unknown]
